FAERS Safety Report 4442963-4 (Version None)
Quarter: 2004Q3

REPORT INFORMATION
  Report Type: 
  Country: None (occurrence: None)
  Receive Date: 20040728
  Receipt Date: 20040517
  Transmission Date: 20050211
  Serious: No
  Sender: FDA-Public Use
  Company Number: USA040567709

PATIENT
  Age: 12 Year
  Sex: Female
  Weight: 29 kg

DRUGS (2)
  1. STRATTERA [Suspect]
     Indication: ATTENTION DEFICIT/HYPERACTIVITY DISORDER
     Dosage: 58 MG DAY
     Dates: start: 20030101
  2. LEXAPRO [Concomitant]

REACTIONS (4)
  - EAR INFECTION [None]
  - PRESCRIBED OVERDOSE [None]
  - RASH [None]
  - SUNBURN [None]
